FAERS Safety Report 5628024-7 (Version None)
Quarter: 2008Q1

REPORT INFORMATION
  Report Type: 
  Country: None (occurrence: None)
  Receive Date: 20080215
  Receipt Date: 20080207
  Transmission Date: 20080703
  Serious: Yes (Hospitalization)
  Sender: FDA-Public Use
  Company Number: US-ELI_LILLY_AND_COMPANY-US200712004276

PATIENT
  Sex: Female

DRUGS (8)
  1. HUMALOG [Suspect]
     Dosage: UNK, AS NEEDED
     Dates: start: 20060101
  2. LANTUS [Concomitant]
     Dosage: 40 U, EACH EVENING
     Route: 058
     Dates: start: 20061117
  3. GLUCOSAMINE W/CHONDROITIN [Concomitant]
     Dosage: UNK, DAILY (1/D)
     Dates: start: 20070627
  4. TYLENOL                                 /SCH/ [Concomitant]
     Dosage: UNK, EACH EVENING
     Route: 048
     Dates: start: 20070208
  5. VITAMIN B-12 [Concomitant]
     Dosage: 500 UG, DAILY (1/D)
     Route: 048
     Dates: start: 20051109
  6. FOLIC ACID [Concomitant]
     Dosage: 1 MG, DAILY (1/D)
     Route: 048
     Dates: start: 20041110
  7. ASCORBIC ACID [Concomitant]
     Dosage: 1000 MG, DAILY (1/D)
     Dates: start: 20010518
  8. CALCIUM D [Concomitant]
     Dates: start: 20010518

REACTIONS (3)
  - ASTHENIA [None]
  - FATIGUE [None]
  - HYPERTENSION [None]
